FAERS Safety Report 7335508-2 (Version None)
Quarter: 2011Q1

REPORT INFORMATION
  Report Type: 
  Country: None (occurrence: None)
  Receive Date: 20110307
  Receipt Date: 20110228
  Transmission Date: 20110831
  Serious: Yes (Life-Threatening, Hospitalization)
  Sender: FDA-Public Use
  Company Number: CO-SANOFI-AVENTIS-2011SA013172

PATIENT
  Age: 65 Year
  Sex: Female
  Weight: 73 kg

DRUGS (11)
  1. PLAVIX [Suspect]
     Route: 065
  2. BLINDED THERAPY [Suspect]
     Indication: ACUTE CORONARY SYNDROME
     Route: 065
     Dates: start: 20090605, end: 20110101
  3. CLONIDINE [Concomitant]
  4. LOVASTATIN [Concomitant]
  5. LOSARTAN POTASSIUM [Concomitant]
  6. FUROSEMIDE [Concomitant]
     Dates: start: 20090909
  7. INSULIN BOVINE [Concomitant]
  8. METOPROLOL [Concomitant]
  9. AMLODIPINE [Concomitant]
  10. METFORMIN [Concomitant]
     Dates: start: 20090715
  11. ASPIRIN [Concomitant]

REACTIONS (1)
  - VENTRICULAR FIBRILLATION [None]
